FAERS Safety Report 7982273-1 (Version None)
Quarter: 2011Q4

REPORT INFORMATION
  Report Type: 
  Country: None (occurrence: None)
  Receive Date: 20111215
  Receipt Date: 20111215
  Transmission Date: 20120403
  Serious: Yes (Other)
  Sender: FDA-Public Use
  Company Number: None

PATIENT
  Sex: Male
  Weight: 98 kg

DRUGS (4)
  1. GENTAMICIN AND NAFCILLIN [Concomitant]
  2. VANCOMYCIN [Suspect]
     Dosage: 1500 MG
     Route: 042
  3. GENTAMICIN [Concomitant]
  4. NAFCILLIN [Concomitant]

REACTIONS (1)
  - BLOOD CREATININE INCREASED [None]
